FAERS Safety Report 20118786 (Version 1)
Quarter: 2021Q4

REPORT INFORMATION
  Report Type: Spontaneous
  Country: None (occurrence: None)
  Receive Date: 20211124
  Receipt Date: 20211124
  Transmission Date: 20220303
  Serious: Yes (Other)
  Sender: FDA-Public Use
  Company Number: None

PATIENT
  Age: 40 Year
  Sex: Female
  Weight: 70 kg

DRUGS (5)
  1. MIRENA [Suspect]
     Active Substance: LEVONORGESTREL
  2. CLOBAZAM [Concomitant]
     Active Substance: CLOBAZAM
  3. Serdep [Concomitant]
  4. Vitiman C [Concomitant]
  5. Vitiman B [Concomitant]

REACTIONS (4)
  - Diplopia [None]
  - Dizziness [None]
  - Pain [None]
  - Visual impairment [None]

NARRATIVE: CASE EVENT DATE: 20211119
